FAERS Safety Report 19101085 (Version 1)
Quarter: 2021Q2

REPORT INFORMATION
  Report Type: Spontaneous
  Country: RU (occurrence: RU)
  Receive Date: 20210407
  Receipt Date: 20210407
  Transmission Date: 20210717
  Serious: Yes (Hospitalization, Other)
  Sender: FDA-Public Use
  Company Number: RU-ASTRAZENECA-2021A071309

PATIENT
  Age: 57 Year
  Sex: Male
  Weight: 97 kg

DRUGS (9)
  1. XARELTO [Concomitant]
     Active Substance: RIVAROXABAN
     Dosage: 20 MG IN THE MORNING
  2. OMEPRAZOLE. [Concomitant]
     Active Substance: OMEPRAZOLE
     Dosage: 20 MG 2 TIMES
  3. VEROSPIRON [Concomitant]
     Active Substance: SPIRONOLACTONE
     Dosage: 25 MG IN THE MORNING.
  4. ACETYLSALICYLIC ACID [Concomitant]
     Active Substance: ASPIRIN
     Dosage: 0.5 MG 1/4 A TABLET
     Route: 065
  5. METOPROLOL. [Concomitant]
     Active Substance: METOPROLOL
     Dosage: 50 MG 2 TIMES, THEN 100 MG BID
  6. ATORVASTATIN [Concomitant]
     Active Substance: ATORVASTATIN
     Dosage: 20 MG IN THE EVENING
  7. THROMBO ASS [Concomitant]
     Active Substance: ASPIRIN
     Route: 065
  8. ENALAPRIL [Concomitant]
     Active Substance: ENALAPRIL
     Dosage: 5 MG 2 TIMES
  9. BRILINTA [Suspect]
     Active Substance: TICAGRELOR
     Indication: MYOCARDIAL INFARCTION
     Route: 048
     Dates: start: 20210114

REACTIONS (8)
  - Left ventricular hypertrophy [Unknown]
  - Bundle branch block right [Unknown]
  - Cardiovascular disorder [Unknown]
  - Left atrial hypertrophy [Unknown]
  - Atrial fibrillation [Recovered/Resolved]
  - Ejection fraction decreased [Unknown]
  - Myocardial fibrosis [Unknown]
  - Cardiovascular insufficiency [Unknown]
